FAERS Safety Report 8903680 (Version 5)
Quarter: 2013Q3

REPORT INFORMATION
  Report Type: Spontaneous
  Country: US (occurrence: US)
  Receive Date: 20121113
  Receipt Date: 20130729
  Transmission Date: 20140515
  Serious: No
  Sender: FDA-Public Use
  Company Number: US-PFIZER INC-2012280125

PATIENT
  Age: 86 Year
  Sex: Female
  Weight: 68.03 kg

DRUGS (4)
  1. FLECTOR [Suspect]
     Indication: ARTHRITIS
     Dosage: UNK, EVERY OTHER DAY
     Route: 062
  2. FLECTOR [Suspect]
     Dosage: UNK, 2X/DAY (EVERYDAY MORNING AND NIGHT)
     Route: 062
  3. FLECTOR [Suspect]
     Dosage: UNK
     Route: 062
  4. TYLENOL [Concomitant]
     Indication: PAIN
     Dosage: UNK

REACTIONS (2)
  - Wrong technique in drug usage process [Unknown]
  - Drug ineffective [Unknown]
